FAERS Safety Report 6802263-1 (Version None)
Quarter: 2010Q2

REPORT INFORMATION
  Report Type: 
  Country: None (occurrence: None)
  Receive Date: 20100628
  Receipt Date: 20100618
  Transmission Date: 20101027
  Serious: Yes (Hospitalization)
  Sender: FDA-Public Use
  Company Number: US-BIOGENIDEC-2010BI001684

PATIENT
  Age: 49 Year
  Sex: Male

DRUGS (2)
  1. AVONEX [Suspect]
     Indication: MULTIPLE SCLEROSIS
     Route: 030
     Dates: start: 19961201, end: 20010101
  2. AVONEX [Suspect]
     Route: 030
     Dates: start: 20050603

REACTIONS (9)
  - ASTHENIA [None]
  - BLOOD SODIUM DECREASED [None]
  - COMA [None]
  - CYSTITIS [None]
  - ENCEPHALITIS [None]
  - GRAND MAL CONVULSION [None]
  - HYPERTENSION [None]
  - NEUROGENIC BLADDER [None]
  - UROSEPSIS [None]
